FAERS Safety Report 15485975 (Version 1)
Quarter: 2018Q4

REPORT INFORMATION
  Report Type: Spontaneous
  Country: TR (occurrence: TR)
  Receive Date: 20181011
  Receipt Date: 20181011
  Transmission Date: 20190205
  Serious: Yes (Other)
  Sender: FDA-Public Use
  Company Number: PHHY2018TR117947

PATIENT
  Age: 6 Year
  Sex: Female

DRUGS (2)
  1. IMIPRAMINE [Suspect]
     Active Substance: IMIPRAMINE
     Indication: ATTENTION DEFICIT/HYPERACTIVITY DISORDER
  2. IMIPRAMINE [Suspect]
     Active Substance: IMIPRAMINE
     Indication: ENURESIS
     Dosage: 25 MG, QD
     Route: 065

REACTIONS (13)
  - Mania [Recovered/Resolved]
  - Suicidal ideation [Recovered/Resolved]
  - Impulsive behaviour [Recovered/Resolved]
  - Irritability [Unknown]
  - Psychomotor hyperactivity [Recovered/Resolved]
  - Agitation [Recovered/Resolved]
  - Decreased appetite [Recovered/Resolved]
  - Dysphoria [Recovered/Resolved]
  - Insomnia [Recovered/Resolved]
  - Self esteem inflated [Recovered/Resolved]
  - Logorrhoea [Recovered/Resolved]
  - Grandiosity [Recovered/Resolved]
  - Product use in unapproved indication [Unknown]
